FAERS Safety Report 9286022 (Version 4)
Quarter: 2013Q3

REPORT INFORMATION
  Report Type: Report from Study
  Country: NL (occurrence: NL)
  Receive Date: 20130513
  Receipt Date: 20130718
  Transmission Date: 20140515
  Serious: Yes (Other)
  Sender: FDA-Public Use
  Company Number: NL-BAXTER-2013BAX016979

PATIENT
  Age: 90 Year
  Sex: Female

DRUGS (4)
  1. GAMMAGARD S/D 10, POEDER VOOR INFUSIEVLOEISTOF [Suspect]
     Indication: MYASTHENIA GRAVIS
     Dosage: 10 GM X2
     Route: 042
     Dates: start: 20121213, end: 20130404
  2. GAMMAGARD S/D 10, POEDER VOOR INFUSIEVLOEISTOF [Suspect]
     Indication: OFF LABEL USE
     Dosage: 10 GM X2
     Route: 042
     Dates: start: 20130404, end: 20130404
  3. GAMMAGARD S/D 5, POEDER VOOR INFUSIEVLOEISTOF [Suspect]
     Indication: MYASTHENIA GRAVIS
     Route: 042
     Dates: start: 20121213, end: 20130404
  4. GAMMAGARD S/D 5, POEDER VOOR INFUSIEVLOEISTOF [Suspect]
     Indication: OFF LABEL USE
     Route: 042
     Dates: start: 20130404, end: 20130404

REACTIONS (3)
  - Drug ineffective [Unknown]
  - Breast cancer [Unknown]
  - Therapy cessation [Unknown]
